FAERS Safety Report 4823416-8 (Version None)
Quarter: 2005Q4

REPORT INFORMATION
  Report Type: 
  Country: None (occurrence: None)
  Receive Date: 20051107
  Receipt Date: 20051027
  Transmission Date: 20060501
  Serious: Yes (Hospitalization, Other)
  Sender: FDA-Public Use
  Company Number: 2005-10-1511

PATIENT
  Age: 45 Year
  Sex: Female

DRUGS (3)
  1. PEG-INTRON [Suspect]
     Indication: HEPATITIS C
     Dosage: SUBCUTANEOUS
     Route: 058
     Dates: start: 20041101
  2. RIBAVIRIN [Suspect]
     Indication: HEPATITIS C
     Dosage: ORAL
     Route: 048
     Dates: start: 20041101
  3. ESOMEPRAZOLE [Concomitant]

REACTIONS (14)
  - BONE PAIN [None]
  - BRADYCARDIA [None]
  - DIARRHOEA [None]
  - FAECALOMA [None]
  - FLATULENCE [None]
  - GUILLAIN-BARRE SYNDROME [None]
  - HYPOAESTHESIA [None]
  - HYPOKALAEMIA [None]
  - HYPONATRAEMIA [None]
  - HYPOTONIA [None]
  - INTERVERTEBRAL DISC DEGENERATION [None]
  - SENSORY DISTURBANCE [None]
  - THYROIDITIS [None]
  - WEIGHT DECREASED [None]
